FAERS Safety Report 23804357 (Version 1)
Quarter: 2024Q2

REPORT INFORMATION
  Report Type: Report from Study
  Country: US (occurrence: US)
  Receive Date: 20240501
  Receipt Date: 20240501
  Transmission Date: 20240716
  Serious: Yes (Hospitalization)
  Sender: FDA-Public Use
  Company Number: US-Pharmaand-2024000287

PATIENT
  Sex: Female

DRUGS (1)
  1. RUBRACA [Suspect]
     Active Substance: RUCAPARIB CAMSYLATE
     Indication: Ovarian cancer
     Dosage: 600MG BID
     Route: 048
     Dates: start: 202102

REACTIONS (3)
  - Adverse drug reaction [Unknown]
  - Weight decreased [Unknown]
  - Fatigue [Unknown]
